FAERS Safety Report 9154405 (Version 1)
Quarter: 2013Q1

REPORT INFORMATION
  Report Type: Spontaneous
  Country: GB (occurrence: None)
  Receive Date: 20130207
  Receipt Date: 20130207
  Transmission Date: 20140127
  Serious: Yes (Hospitalization)
  Sender: FDA-Public Use
  Company Number: 2013-01852

PATIENT
  Age: 66 Year
  Sex: Male
  Weight: 56 kg

DRUGS (3)
  1. FLUDARABINE PHOSPHATE [Suspect]
     Indication: CHRONIC LYMPHOCYTIC LEUKAEMIA
     Dosage: 20 MG ONCE DAILY FOR 5 DAYS-28 DAY CYCLES, ORAL
     Route: 048
     Dates: start: 20121012, end: 20121109
  2. CYCLOPHOSPHAMIDE (CYCLOPHOSPHAMIDE) [Concomitant]
  3. RITUXIMAB (RITUXIMAB) [Concomitant]

REACTIONS (2)
  - Stress cardiomyopathy [None]
  - Chest pain [None]
